FAERS Safety Report 5030924-6 (Version None)
Quarter: 2006Q2

REPORT INFORMATION
  Report Type: 
  Country: None (occurrence: None)
  Receive Date: 20060619
  Receipt Date: 20060613
  Transmission Date: 20061013
  Serious: Yes (Other)
  Sender: FDA-Public Use
  Company Number: 200612464GDS

PATIENT
  Age: 46 Year
  Sex: Female

DRUGS (10)
  1. CIPROFLOXACIN HCL [Suspect]
     Dosage: 1000 MG, TOTAL DAILY, ORAL
     Route: 048
  2. MERREM [Suspect]
     Dosage: 3 G, TOTAL DAILY, INTRAVENOUS
     Route: 042
  3. ALLOPURINOL [Concomitant]
  4. AMSA PD [Concomitant]
  5. CYTARABINE [Concomitant]
  6. GRANISETRON  HCL [Concomitant]
  7. ITRACONAZOLE [Concomitant]
  8. TOBRAMYCIN [Concomitant]
  9. TRANEXAMIC [Concomitant]
  10. VANCOMYCIN [Concomitant]

REACTIONS (4)
  - FACE OEDEMA [None]
  - PRURITUS [None]
  - RASH MACULO-PAPULAR [None]
  - SKIN EXFOLIATION [None]
